FAERS Safety Report 15530517 (Version 2)
Quarter: 2018Q4

REPORT INFORMATION
  Report Type: Spontaneous
  Country: US (occurrence: US)
  Receive Date: 20181018
  Receipt Date: 20181101
  Transmission Date: 20190205
  Serious: Yes (Other)
  Sender: FDA-Public Use
  Company Number: US-SUNOVION-2018SUN004048

PATIENT
  Sex: Male
  Weight: 80.73 kg

DRUGS (3)
  1. LATUDA [Suspect]
     Active Substance: LURASIDONE HYDROCHLORIDE
     Indication: PSYCHOTIC DISORDER
     Dosage: UNK
     Route: 048
     Dates: start: 2012, end: 2015
  2. LATUDA [Suspect]
     Active Substance: LURASIDONE HYDROCHLORIDE
     Dosage: 20 MG, QD
     Route: 048
  3. LATUDA [Suspect]
     Active Substance: LURASIDONE HYDROCHLORIDE
     Dosage: 40 MG, QD
     Route: 048
     Dates: start: 20181006, end: 20181030

REACTIONS (11)
  - Psychotic disorder [Unknown]
  - Fatigue [Unknown]
  - Nasopharyngitis [Recovering/Resolving]
  - Tardive dyskinesia [Recovered/Resolved]
  - Off label use [Unknown]
  - Sedation [Recovering/Resolving]
  - Confusional state [Unknown]
  - Drug tolerance [Unknown]
  - Incorrect dose administered [Unknown]
  - Tremor [Recovered/Resolved]
  - Extrapyramidal disorder [Recovered/Resolved]
